FAERS Safety Report 5952567-X (Version None)
Quarter: 2008Q4

REPORT INFORMATION
  Report Type: 
  Country: None (occurrence: None)
  Receive Date: 20081029
  Receipt Date: 20080501
  Transmission Date: 20090506
  Serious: Yes (Other)
  Sender: FDA-Public Use
  Company Number: 48028

PATIENT
  Sex: Female

DRUGS (1)
  1. METHOTREXATE [Suspect]
     Indication: RHEUMATOID ARTHRITIS
     Dosage: STARTED AT 6ML WEEKLY; SWITCHED TO 3ML WEEKLY
     Dates: start: 20070801, end: 20071101

REACTIONS (1)
  - ALOPECIA [None]
